FAERS Safety Report 8812982 (Version 8)
Quarter: 2013Q4

REPORT INFORMATION
  Report Type: Report from Study
  Country: CA (occurrence: CA)
  Receive Date: 20120927
  Receipt Date: 20131120
  Transmission Date: 20140711
  Serious: Yes (Hospitalization, Other)
  Sender: FDA-Public Use
  Company Number: CA-ROCHE-1131725

PATIENT
  Age: 79 Year
  Sex: Male
  Weight: 69 kg

DRUGS (13)
  1. ACTEMRA [Suspect]
     Indication: RHEUMATOID ARTHRITIS
     Dosage: ON 05/SEP/2012, LAST DOSE OF TOCILIZUMAB PRIOR TO SAE.
     Route: 042
     Dates: start: 20120806
  2. ACTEMRA [Suspect]
     Dosage: DOSE REDUCED
     Route: 042
  3. ACTEMRA [Suspect]
     Route: 042
     Dates: start: 20121115
  4. CELEBREX [Concomitant]
     Route: 048
     Dates: start: 19990525
  5. SYNTHROID [Concomitant]
     Route: 048
  6. SULFASALAZINE [Concomitant]
     Route: 048
     Dates: start: 1993
  7. ASA [Concomitant]
     Route: 048
     Dates: start: 2007
  8. TYLENOL ARTHRITIS [Concomitant]
     Route: 048
  9. ALEVE [Concomitant]
     Route: 065
  10. COD LIVER OIL [Concomitant]
     Route: 048
  11. DULCOLAX (BISACODYL) [Concomitant]
     Route: 048
  12. DULCOLAX (BISACODYL) [Concomitant]
     Route: 065
     Dates: start: 2011
  13. BISOPROLOL [Concomitant]
     Route: 048
     Dates: start: 2007

REACTIONS (8)
  - Arthropathy [Unknown]
  - Fall [Unknown]
  - Hip fracture [Recovered/Resolved]
  - Hypotension [Unknown]
  - White blood cell count decreased [Unknown]
  - Cough [Recovering/Resolving]
  - Red blood cell count decreased [Unknown]
  - Labile blood pressure [Unknown]
